FAERS Safety Report 13651708 (Version 1)
Quarter: 2017Q2

REPORT INFORMATION
  Report Type: Spontaneous
  Country: US (occurrence: US)
  Receive Date: 20170614
  Receipt Date: 20170614
  Transmission Date: 20170830
  Serious: Yes (Hospitalization, Other)
  Sender: FDA-Public Use
  Company Number: US-ASTRAZENECA-2017SE60283

PATIENT
  Age: 24505 Day
  Sex: Female
  Weight: 54.4 kg

DRUGS (3)
  1. LISINOPRIL. [Suspect]
     Active Substance: LISINOPRIL
     Indication: BLOOD PRESSURE ABNORMAL
     Route: 048
     Dates: start: 2007
  2. SYMBICORT [Suspect]
     Active Substance: BUDESONIDE\FORMOTEROL FUMARATE DIHYDRATE
     Dosage: 160/4.5 MCG TWO PUFFS; TWO TIMES A DAY
     Route: 055
     Dates: start: 20170603, end: 20170603
  3. METFORMIN [Concomitant]
     Active Substance: METFORMIN HYDROCHLORIDE
     Indication: BLOOD GLUCOSE ABNORMAL
     Dosage: DAILY
     Route: 048
     Dates: start: 2013

REACTIONS (6)
  - Pneumonia [Unknown]
  - Chronic obstructive pulmonary disease [Unknown]
  - Erythema [Recovered/Resolved]
  - Drug hypersensitivity [Unknown]
  - Pleural effusion [Recovered/Resolved]
  - Asthma [Not Recovered/Not Resolved]

NARRATIVE: CASE EVENT DATE: 20170603
